FAERS Safety Report 16997241 (Version 5)
Quarter: 2021Q2

REPORT INFORMATION
  Report Type: Other
  Country: CH (occurrence: CH)
  Receive Date: 20191106
  Receipt Date: 20210407
  Transmission Date: 20210716
  Serious: Yes (Other)
  Sender: FDA-Public Use
  Company Number: CH-ROCHE-2465483

PATIENT
  Sex: Male

DRUGS (20)
  1. RANIBIZUMAB. [Suspect]
     Active Substance: RANIBIZUMAB
     Indication: VISUAL IMPAIRMENT
     Dosage: 0.5 MG, PRE?FILLED SYRINGE IN RIGHT AND LEFT EYE
     Route: 050
     Dates: start: 20190227, end: 20200227
  2. RANIBIZUMAB. [Suspect]
     Active Substance: RANIBIZUMAB
     Dosage: 0.5 MG, PRE?FILLED SYRINGE IN RIGHT AND LEFT EYE
     Route: 050
     Dates: start: 20190327, end: 20190327
  3. RANIBIZUMAB. [Suspect]
     Active Substance: RANIBIZUMAB
     Dosage: 0.5 MG, PRE?FILLED SYRINGE, BOTH RIGHT AND LEFT EYE
     Route: 050
     Dates: start: 20191025, end: 20191025
  4. RANIBIZUMAB. [Suspect]
     Active Substance: RANIBIZUMAB
     Dosage: 0.5 MG, PRE?FILLED SYRINGE, BOTH RIGHT AND LEFT EYE
     Route: 050
     Dates: start: 20200110, end: 20200110
  5. RANIBIZUMAB. [Suspect]
     Active Substance: RANIBIZUMAB
     Dosage: 0.5 MG, PRE?FILLED SYRINGE, BOTH RIGHT AND LEFT EYE
     Route: 050
     Dates: start: 20210106
  6. RANIBIZUMAB. [Suspect]
     Active Substance: RANIBIZUMAB
     Route: 065
  7. RANIBIZUMAB. [Suspect]
     Active Substance: RANIBIZUMAB
     Dosage: 0.5 MG, PRE?FILLED SYRINGE, BOTH RIGHT AND LEFT EYE
     Route: 050
     Dates: start: 20200219, end: 20200219
  8. RANIBIZUMAB. [Suspect]
     Active Substance: RANIBIZUMAB
     Dosage: 0.5 MG, PRE?FILLED SYRINGE, BOTH RIGHT AND LEFT EYE
     Route: 050
     Dates: start: 20190626, end: 20190626
  9. RANIBIZUMAB. [Suspect]
     Active Substance: RANIBIZUMAB
     Dosage: 0.5 MG, PRE?FILLED SYRINGE, BOTH RIGHT AND LEFT EYE
     Route: 050
     Dates: start: 20190830, end: 20190830
  10. RANIBIZUMAB. [Suspect]
     Active Substance: RANIBIZUMAB
     Dosage: 0.5 MG, PRE?FILLED SYRINGE, BOTH RIGHT AND LEFT EYE
     Route: 050
     Dates: start: 20200529, end: 20200529
  11. RANIBIZUMAB. [Suspect]
     Active Substance: RANIBIZUMAB
     Dosage: 0.5 MG, PRE?FILLED SYRINGE, BOTH RIGHT AND LEFT EYE
     Route: 050
     Dates: start: 20200902
  12. RANIBIZUMAB. [Suspect]
     Active Substance: RANIBIZUMAB
     Dosage: 0.5 MG, PRE?FILLED SYRINGE, BOTH RIGHT AND LEFT EYE
     Route: 050
     Dates: start: 20190724, end: 20190724
  13. RANIBIZUMAB. [Suspect]
     Active Substance: RANIBIZUMAB
     Dosage: 0.5 MG, PRE?FILLED SYRINGE, BOTH RIGHT AND LEFT EYE
     Route: 050
     Dates: start: 20190925, end: 20190925
  14. RANIBIZUMAB. [Suspect]
     Active Substance: RANIBIZUMAB
     Dosage: 0.5 MG, PRE?FILLED SYRINGE, BOTH RIGHT AND LEFT EYE
     Route: 050
     Dates: start: 20191122, end: 20191122
  15. CEFUROXIME. [Concomitant]
     Active Substance: CEFUROXIME
     Indication: PROPHYLAXIS
     Route: 065
     Dates: start: 20200227, end: 20200227
  16. RANIBIZUMAB. [Suspect]
     Active Substance: RANIBIZUMAB
     Dosage: 0.5 MG, PRE?FILLED SYRINGE, BOTH RIGHT AND LEFT EYE
     Route: 050
     Dates: start: 20190503, end: 20190503
  17. RANIBIZUMAB. [Suspect]
     Active Substance: RANIBIZUMAB
     Dosage: 0.5 MG, PRE?FILLED SYRINGE, BOTH RIGHT AND LEFT EYE
     Route: 050
     Dates: start: 20190529, end: 20190529
  18. RANIBIZUMAB. [Suspect]
     Active Substance: RANIBIZUMAB
     Dosage: 0.5 MG, PRE?FILLED SYRINGE, BOTH RIGHT AND LEFT EYE
     Route: 050
     Dates: start: 20200624
  19. RANIBIZUMAB. [Suspect]
     Active Substance: RANIBIZUMAB
     Dosage: 0.5 MG, PRE?FILLED SYRINGE, BOTH RIGHT AND LEFT EYE
     Route: 050
     Dates: start: 20200722
  20. RANIBIZUMAB. [Suspect]
     Active Substance: RANIBIZUMAB
     Dosage: 0.5 MG, PRE?FILLED SYRINGE, BOTH RIGHT AND LEFT EYE
     Route: 050
     Dates: start: 20201028

REACTIONS (4)
  - Cataract [Recovered/Resolved]
  - Corneal erosion [Recovered/Resolved]
  - Cystoid macular oedema [Recovered/Resolved]
  - Retinal thickening [Recovered/Resolved]

NARRATIVE: CASE EVENT DATE: 20190430
